FAERS Safety Report 4898800-7 (Version None)
Quarter: 2006Q1

REPORT INFORMATION
  Report Type: 
  Country: None (occurrence: None)
  Receive Date: 20060105
  Receipt Date: 20051013
  Transmission Date: 20060701
  Serious: Yes (Hospitalization)
  Sender: FDA-Public Use
  Company Number: 2005142742

PATIENT

DRUGS (1)
  1. ZMAX [Suspect]
     Indication: RESPIRATORY TRACT INFECTION

REACTIONS (1)
  - STEVENS-JOHNSON SYNDROME [None]
